FAERS Safety Report 6737380-8 (Version None)
Quarter: 2010Q2

REPORT INFORMATION
  Report Type: 
  Country: None (occurrence: None)
  Receive Date: 20100521
  Receipt Date: 20100521
  Transmission Date: 20101027
  Serious: Yes (Hospitalization)
  Sender: FDA-Public Use
  Company Number: None

PATIENT
  Age: 80 Year
  Sex: Female
  Weight: 51 kg

DRUGS (17)
  1. LISINOPRIL [Suspect]
     Indication: HYPERTENSION
     Dosage: 10MG DAILY PO CHRONIC
     Route: 048
  2. KAYEXALATE [Concomitant]
  3. COMBIVENT [Concomitant]
  4. AMLODIPINE [Concomitant]
  5. RANITIDINE [Concomitant]
  6. SIMVASTATIN [Concomitant]
  7. ARICEPT [Concomitant]
  8. VENTOLIN [Concomitant]
  9. METAMUCIL-2 [Concomitant]
  10. CARVEDILOL [Concomitant]
  11. CITALOPRAM [Concomitant]
  12. FERROUS SULFATE TAB [Concomitant]
  13. APAP TAB [Concomitant]
  14. ASPIRIN [Concomitant]
  15. AMOXICILLIN [Concomitant]
  16. DIFLUCAN [Concomitant]
  17. RISPERAL [Concomitant]

REACTIONS (4)
  - DIALYSIS [None]
  - HYPERKALAEMIA [None]
  - RENAL FAILURE ACUTE [None]
  - RENAL TUBULAR ACIDOSIS [None]
